FAERS Safety Report 8160491-X (Version None)
Quarter: 2012Q1

REPORT INFORMATION
  Report Type: 
  Country: None (occurrence: None)
  Receive Date: 20120223
  Receipt Date: 20120217
  Transmission Date: 20120608
  Serious: Yes (Other)
  Sender: FDA-Public Use
  Company Number: ES-CUBIST-2012S1000206

PATIENT
  Age: 55 Year
  Sex: Male

DRUGS (4)
  1. VANCOMYCIN [Concomitant]
     Indication: PRODUCT USED FOR UNKNOWN INDICATION
     Route: 042
     Dates: start: 20111006, end: 20111026
  2. GENTAMICIN [Suspect]
     Indication: WOUND SEPSIS
     Route: 042
     Dates: start: 20111017, end: 20111107
  3. MEROPENEM [Concomitant]
     Indication: WOUND SEPSIS
     Dosage: DOSE UNIT:U UNKNOWN
     Route: 042
     Dates: start: 20111006, end: 20111017
  4. CUBICIN [Suspect]
     Indication: WOUND SEPSIS
     Route: 042
     Dates: start: 20111026, end: 20111109

REACTIONS (1)
  - NEPHROPATHY TOXIC [None]
